FAERS Safety Report 15304631 (Version 1)
Quarter: 2018Q3

REPORT INFORMATION
  Report Type: Spontaneous
  Country: US (occurrence: US)
  Receive Date: 20180809
  Receipt Date: 20180809
  Transmission Date: 20181010
  Serious: Yes (Death)
  Sender: FDA-Public Use
  Company Number: None

PATIENT
  Sex: Male

DRUGS (5)
  1. DIVALPROEX 125MG [Concomitant]
  2. QUETIAPINE 25MG [Concomitant]
     Active Substance: QUETIAPINE
  3. HYDROXYZINE 10MG [Concomitant]
  4. SIMVASTATIN 10MG [Concomitant]
     Active Substance: SIMVASTATIN
  5. ENBREL [Suspect]
     Active Substance: ETANERCEPT
     Indication: PSORIASIS
     Route: 058
     Dates: start: 20180109

REACTIONS (1)
  - Death [None]
